FAERS Safety Report 8474349-X (Version None)
Quarter: 2012Q2

REPORT INFORMATION
  Report Type: 
  Country: None (occurrence: None)
  Receive Date: 20120628
  Receipt Date: 20120622
  Transmission Date: 20120825
  Serious: Yes (Hospitalization, Other)
  Sender: FDA-Public Use
  Company Number: US-AMGEN-USASP2012004204

PATIENT
  Age: 29 Year
  Sex: Female
  Weight: 87.528 kg

DRUGS (9)
  1. ENBREL [Suspect]
     Dosage: 50 MG, QWK
     Route: 058
     Dates: start: 20101101, end: 20101201
  2. ENBREL [Suspect]
     Dosage: 50 ML, QWK
     Dates: start: 20090301, end: 20101201
  3. XOPENEX [Concomitant]
     Dosage: UNK UNK, PRN
     Route: 055
     Dates: start: 20110301
  4. PLAQUENIL [Concomitant]
     Dosage: UNK
  5. ENBREL [Suspect]
     Dosage: 50 MG, QWK
     Dates: start: 20101102, end: 20101201
  6. PREDNISONE TAB [Concomitant]
     Dosage: 10 MG, BID
     Route: 048
  7. PRENATAL VITAMINS                  /01549301/ [Concomitant]
     Dosage: UNK UNK, QD
     Route: 048
     Dates: start: 20100901
  8. ENBREL [Suspect]
     Indication: RHEUMATOID ARTHRITIS
     Dosage: 50 ML, QWK
     Dates: start: 20120101
  9. SULFASALAZINE [Concomitant]
     Dosage: UNK

REACTIONS (6)
  - PREMATURE LABOUR [None]
  - RESPIRATORY ARREST [None]
  - CAESAREAN SECTION [None]
  - UTERINE LEIOMYOMA [None]
  - OBSTRUCTED LABOUR [None]
  - ANAESTHETIC COMPLICATION PULMONARY [None]
